FAERS Safety Report 8061372-2 (Version None)
Quarter: 2012Q1

REPORT INFORMATION
  Report Type: 
  Country: None (occurrence: None)
  Receive Date: 20120120
  Receipt Date: 20120111
  Transmission Date: 20120608
  Serious: Yes (Other)
  Sender: FDA-Public Use
  Company Number: US-ASTRAZENECA-2011SE35385

PATIENT
  Age: 66 Year
  Sex: Female

DRUGS (33)
  1. PROVENTIL [Concomitant]
  2. MULTI-VITAMINS [Concomitant]
     Indication: VITAMIN SUPPLEMENTATION
     Dosage: ONE A DAY
  3. ADVAIR DISKUS 100/50 [Concomitant]
  4. PROVENTIL [Concomitant]
  5. PROVENTIL [Concomitant]
  6. NAPROXEN [Concomitant]
     Indication: TEMPOROMANDIBULAR JOINT SYNDROME
  7. CLARINEX-D [Concomitant]
     Indication: SINUSITIS
     Dosage: 5-240 MG/ ONE TABLET DAILY/AS NEEDED
  8. NEXIUM [Suspect]
     Route: 048
  9. ULTRAM [Concomitant]
     Indication: COMPLEX REGIONAL PAIN SYNDROME
     Dosage: 2 PILLS 3-4 TIMES A DAY AS NEEDED
  10. PROVENTIL [Concomitant]
     Indication: ASTHMA
  11. TUMS ULTRA STRENGTH [Concomitant]
     Indication: DYSPEPSIA
     Dosage: AS NEEDED
  12. NEXIUM [Suspect]
     Indication: REFLUX LARYNGITIS
     Route: 048
  13. CRESTOR [Suspect]
     Indication: HYPERCHOLESTEROLAEMIA
     Route: 048
  14. RHINOCORT [Suspect]
     Indication: SINUS CONGESTION
     Dosage: 32 MCG THREE TIMES A DAY AS NEEDED, TWO SPRAYS EACH NOSTRIL
     Route: 045
  15. EPIPEN [Concomitant]
     Indication: ALLERGY TO ARTHROPOD STING
  16. LYRICA [Concomitant]
     Indication: POST-TRAUMATIC HEADACHE
  17. PROCHOLORPERAZINE [Concomitant]
     Indication: NAUSEA
  18. PROVENTIL [Concomitant]
     Indication: CHEST DISCOMFORT
  19. TRAZODONE HCL [Concomitant]
     Indication: INSOMNIA
  20. VISINE EYE DROPS [Concomitant]
     Indication: DRY EYE
     Dosage: TWO DROPS EACH EYE, 3 TIMES A DAY
  21. VIACTIV-PLUS D [Concomitant]
     Indication: OSTEOPOROSIS
     Dosage: TWO A DAY
  22. VICODIN/APAP [Concomitant]
     Indication: FIBROMYALGIA
     Dosage: 5/500 MG AS NEEDED/ ONE A DAY
  23. CYCLOBENZAPRINE [Concomitant]
     Indication: COMPLEX REGIONAL PAIN SYNDROME
  24. PROVENTIL [Concomitant]
     Indication: COUGH
  25. CARISOPRODOL [Concomitant]
     Indication: ARTHRALGIA
  26. FLEXERIL [Concomitant]
  27. RHINOCORT [Suspect]
     Indication: SINUSITIS
     Dosage: 32 MCG THREE TIMES A DAY AS NEEDED, TWO SPRAYS EACH NOSTRIL
     Route: 045
  28. LYRICA [Concomitant]
     Indication: FIBROMYALGIA
  29. CYCLOBENZAPRINE [Concomitant]
     Indication: ARTHRITIS
  30. NAPROXEN [Concomitant]
     Indication: ARTHRITIS
  31. OXYCODONE HCL [Concomitant]
     Indication: ARTHRITIS
     Dosage: 5/325 MG AS NEEDED
  32. AMOXICILLIN [Concomitant]
     Dosage: ONE HOUR BEFORE DENTAL APPT.
  33. ASPIRIN [Concomitant]
     Indication: BLOOD CHOLESTEROL INCREASED

REACTIONS (9)
  - OFF LABEL USE [None]
  - DRUG DOSE OMISSION [None]
  - DYSPNOEA [None]
  - PAIN [None]
  - FALL [None]
  - GENERAL PHYSICAL HEALTH DETERIORATION [None]
  - NERVE INJURY [None]
  - MENISCUS LESION [None]
  - DYSPEPSIA [None]
